FAERS Safety Report 14327970 (Version 1)
Quarter: 2017Q4

REPORT INFORMATION
  Report Type: Spontaneous
  Country: BR (occurrence: BR)
  Receive Date: 20171227
  Receipt Date: 20171227
  Transmission Date: 20180321
  Serious: Yes (Other)
  Sender: FDA-Public Use
  Company Number: BR-BIOMARINAP-BR-2017-116542

PATIENT
  Sex: Male
  Weight: 17 kg

DRUGS (1)
  1. NAGLAZYME [Suspect]
     Active Substance: GALSULFASE
     Indication: MUCOPOLYSACCHARIDOSIS VI
     Dosage: 15 MG, QW
     Route: 042
     Dates: start: 20080404

REACTIONS (5)
  - Adenoidal hypertrophy [Unknown]
  - Respiratory failure [Unknown]
  - Hypoacusis [Unknown]
  - Sleep disorder [Unknown]
  - Respiratory tract infection [Unknown]
